FAERS Safety Report 15277347 (Version 2)
Quarter: 2019Q1

REPORT INFORMATION
  Report Type: Spontaneous
  Country: PT (occurrence: PT)
  Receive Date: 20180814
  Receipt Date: 20190111
  Transmission Date: 20190417
  Serious: Yes (Other)
  Sender: FDA-Public Use
  Company Number: PT-BAUSCH-BL-2018-021183

PATIENT
  Age: 9 Month
  Sex: Female
  Weight: 2.4 kg

DRUGS (25)
  1. AZATHIOPRIN [Suspect]
     Active Substance: AZATHIOPRINE
     Indication: FOETAL EXPOSURE DURING PREGNANCY
  2. METHYLPREDNISOLONE. [Suspect]
     Active Substance: METHYLPREDNISOLONE
     Indication: IMMUNE THROMBOCYTOPENIC PURPURA
     Route: 064
  3. ENOXAPARIN [Suspect]
     Active Substance: ENOXAPARIN
     Indication: THROMBOSIS PROPHYLAXIS
     Route: 064
  4. ELTROMBOPAG [Suspect]
     Active Substance: ELTROMBOPAG
     Indication: FOETAL EXPOSURE DURING PREGNANCY
     Route: 064
     Dates: start: 20170718, end: 201707
  5. PREDNISOLONE. [Suspect]
     Active Substance: PREDNISOLONE
     Route: 064
     Dates: start: 20170707
  6. DEXAMETHASONE. [Suspect]
     Active Substance: DEXAMETHASONE
     Route: 064
     Dates: start: 20170711
  7. PANTOPRAZOLE [Suspect]
     Active Substance: PANTOPRAZOLE
     Indication: PROPHYLAXIS
     Dosage: 2 TRIMESTER
     Route: 064
  8. PREDNISOLONE. [Suspect]
     Active Substance: PREDNISOLONE
     Indication: IMMUNE THROMBOCYTOPENIC PURPURA
     Route: 064
  9. AZATHIOPRIN [Suspect]
     Active Substance: AZATHIOPRINE
     Indication: THROMBOCYTOPENIC PURPURA
     Dosage: 150 MG/KG, 1X/DAY (1MG/KG)
     Route: 064
     Dates: start: 20170712, end: 20170731
  10. ENOXAPARIN [Suspect]
     Active Substance: ENOXAPARIN
     Indication: IMMUNE THROMBOCYTOPENIC PURPURA
  11. DEXAMETHASONE. [Suspect]
     Active Substance: DEXAMETHASONE
     Indication: IMMUNE THROMBOCYTOPENIC PURPURA
     Route: 064
     Dates: start: 20170711, end: 20170712
  12. NIFEDIPINE. [Suspect]
     Active Substance: NIFEDIPINE
     Indication: HYPERTENSION
     Route: 064
  13. NIFEDIPINE. [Suspect]
     Active Substance: NIFEDIPINE
     Indication: FOETAL EXPOSURE DURING PREGNANCY
  14. PANTOPRAZOLE [Suspect]
     Active Substance: PANTOPRAZOLE
     Indication: FOETAL EXPOSURE DURING PREGNANCY
     Route: 064
     Dates: start: 20170703
  15. PREDNISOLONE. [Suspect]
     Active Substance: PREDNISOLONE
     Route: 064
     Dates: start: 20170808, end: 20170816
  16. DEXAMETHASONE. [Suspect]
     Active Substance: DEXAMETHASONE
     Indication: FOETAL EXPOSURE DURING PREGNANCY
     Dosage: 4X/DAY
     Route: 064
  17. METHYLPREDNISOLONE. [Suspect]
     Active Substance: METHYLPREDNISOLONE
     Indication: FOETAL EXPOSURE DURING PREGNANCY
     Route: 064
  18. PREDNISOLONE. [Suspect]
     Active Substance: PREDNISOLONE
     Route: 064
     Dates: start: 20170731
  19. ENOXAPARIN [Suspect]
     Active Substance: ENOXAPARIN
     Indication: FOETAL EXPOSURE DURING PREGNANCY
  20. ELTROMBOPAG [Suspect]
     Active Substance: ELTROMBOPAG
     Indication: IMMUNE THROMBOCYTOPENIC PURPURA
     Route: 064
     Dates: start: 20170804, end: 20170814
  21. PREDNISOLONE. [Suspect]
     Active Substance: PREDNISOLONE
     Route: 064
     Dates: start: 20170725
  22. NIFEDIPINE. [Suspect]
     Active Substance: NIFEDIPINE
     Indication: BLOOD PRESSURE MEASUREMENT
  23. PREDNISOLONE. [Suspect]
     Active Substance: PREDNISOLONE
     Route: 064
     Dates: start: 20170731
  24. AZATHIOPRIN [Suspect]
     Active Substance: AZATHIOPRINE
     Indication: IMMUNE THROMBOCYTOPENIC PURPURA
  25. ELTROMBOPAG [Suspect]
     Active Substance: ELTROMBOPAG
     Indication: THROMBOCYTOPENIC PURPURA
     Route: 064
     Dates: start: 20170731, end: 2017

REACTIONS (5)
  - Jaundice neonatal [Recovered/Resolved]
  - Premature baby [Recovered/Resolved]
  - Maternal exposure during pregnancy [Recovered/Resolved]
  - Foetal exposure during delivery [Recovered/Resolved]
  - Premature delivery [Recovered/Resolved]
